FAERS Safety Report 8292377-4 (Version None)
Quarter: 2012Q2

REPORT INFORMATION
  Report Type: 
  Country: None (occurrence: None)
  Receive Date: 20120417
  Receipt Date: 20120402
  Transmission Date: 20120825
  Serious: Yes (Other)
  Sender: FDA-Public Use
  Company Number: CHPA2012US004604

PATIENT
  Sex: Female

DRUGS (7)
  1. CALCIUM WITH VITAMIN D [Concomitant]
     Dosage: 600 MG, 2 PER DAY
  2. EXCEDRIN EXTRA STRENGTH TABLETS [Suspect]
     Indication: PAIN
     Dosage: 1 DF, PRN
     Route: 048
  3. EXCEDRIN EXTRA STRENGTH TABLETS [Suspect]
     Dosage: UNK , UNK
     Route: 048
  4. IBUPROFEN (ADVIL) [Concomitant]
     Dosage: 3 DF, Q 4-6 HOURS
  5. DRUG THERAPY NOS [Concomitant]
     Indication: BACK PAIN
  6. ASPIRIN [Concomitant]
     Dosage: 80 MG, PRN
  7. FOSAMAX [Concomitant]
     Indication: OSTEOPOROSIS
     Dosage: 75 MG, 1 PER WEEK
     Dates: start: 20120106

REACTIONS (3)
  - BLADDER CANCER [None]
  - GASTROOESOPHAGEAL REFLUX DISEASE [None]
  - UNDERDOSE [None]
